FAERS Safety Report 19490330 (Version 2)
Quarter: 2023Q2

REPORT INFORMATION
  Report Type: Spontaneous
  Country: FR (occurrence: FR)
  Receive Date: 20210705
  Receipt Date: 20230613
  Transmission Date: 20230722
  Serious: Yes (Hospitalization, Other)
  Sender: FDA-Public Use
  Company Number: FR-SPECTRUM PHARMACEUTICALS, INC.-15-Z-FR-00461

PATIENT
  Age: 65 Year
  Sex: Male

DRUGS (10)
  1. MELPHALAN [Suspect]
     Active Substance: MELPHALAN
     Indication: Mantle cell lymphoma stage IV
     Dosage: UNK
     Route: 065
  2. ZEVALIN [Suspect]
     Active Substance: IBRITUMOMAB TIUXETAN
     Indication: Mantle cell lymphoma stage IV
     Dosage: 1200 MEGABECQUEREL
     Route: 042
     Dates: start: 20151112, end: 20151112
  3. CYTARABINE [Suspect]
     Active Substance: CYTARABINE
     Indication: Mantle cell lymphoma stage IV
     Dosage: UNK
     Route: 065
  4. BENDAMUSTINE [Suspect]
     Active Substance: BENDAMUSTINE
     Indication: Mantle cell lymphoma stage IV
     Dosage: UNK
     Route: 042
  5. BICNU [Suspect]
     Active Substance: CARMUSTINE
     Indication: Mantle cell lymphoma stage IV
     Dosage: UNK
     Route: 065
  6. ETOPOSIDE [Suspect]
     Active Substance: ETOPOSIDE
     Indication: Mantle cell lymphoma stage IV
     Dosage: UNK
     Route: 065
  7. MABTHERA [Suspect]
     Active Substance: RITUXIMAB
     Indication: Mantle cell lymphoma stage IV
     Dosage: UNK
     Route: 042
     Dates: start: 20151112
  8. CARMUSTINE [Concomitant]
     Active Substance: CARMUSTINE
     Indication: Mantle cell lymphoma stage IV
     Dosage: UNK
     Route: 065
  9. CISPLATIN [Concomitant]
     Active Substance: CISPLATIN
     Indication: Mantle cell lymphoma stage IV
     Dosage: UNK
     Route: 065
  10. DEXAMETHASONE [Concomitant]
     Active Substance: DEXAMETHASONE
     Indication: Mantle cell lymphoma stage IV
     Dosage: UNK
     Route: 065

REACTIONS (9)
  - Joint range of motion decreased [Unknown]
  - Pain [Not Recovered/Not Resolved]
  - Radiation injury [Unknown]
  - Injection site reaction [Not Recovered/Not Resolved]
  - Skin necrosis [Recovering/Resolving]
  - Erythema [Not Recovered/Not Resolved]
  - Skin swelling [Not Recovered/Not Resolved]
  - Extravasation [Recovering/Resolving]
  - Off label use [Unknown]

NARRATIVE: CASE EVENT DATE: 20151112
